FAERS Safety Report 11022891 (Version 1)
Quarter: 2015Q2

REPORT INFORMATION
  Report Type: Spontaneous
  Country: US (occurrence: US)
  Receive Date: 20150413
  Receipt Date: 20150413
  Transmission Date: 20150821
  Serious: No
  Sender: FDA-Public Use
  Company Number: US-GLAXOSMITHKLINE-US2015GSK004045

PATIENT
  Age: 77 Year
  Sex: Male
  Weight: 72.56 kg

DRUGS (1)
  1. VOTRIENT [Suspect]
     Active Substance: PAZOPANIB HYDROCHLORIDE
     Indication: RENAL CELL CARCINOMA
     Dosage: 200 MG, 1D
     Route: 048

REACTIONS (2)
  - Decreased appetite [Recovering/Resolving]
  - Weight decreased [Recovering/Resolving]
